FAERS Safety Report 14604267 (Version 3)
Quarter: 2018Q3

REPORT INFORMATION
  Report Type: Report from Study
  Country: US (occurrence: US)
  Receive Date: 20180306
  Receipt Date: 20180808
  Transmission Date: 20181010
  Serious: Yes (Other)
  Sender: FDA-Public Use
  Company Number: US-PRAGMA PHARMACEUTICALS, LLC-2018PRG00013

PATIENT
  Age: 78 Year
  Sex: Male
  Weight: 76.55 kg

DRUGS (7)
  1. KEFLEX [Suspect]
     Active Substance: CEPHALEXIN
     Dosage: UNK
     Dates: start: 20171128, end: 20171201
  2. CARBOPLATIN. [Suspect]
     Active Substance: CARBOPLATIN
     Indication: NON-SMALL CELL LUNG CANCER
     Dosage: 6 AUC, EVERY 3 WEEKS
     Route: 042
     Dates: start: 20171002
  3. PEMBROLIZUMAB. [Suspect]
     Active Substance: PEMBROLIZUMAB
     Dosage: 200 MG, 2X/MONTH
     Route: 042
     Dates: start: 20180116
  4. INCB024360 [Suspect]
     Active Substance: EPACADOSTAT
     Dosage: 100 MG, 2X/DAY
     Route: 048
     Dates: start: 20180116
  5. INCB024360 [Suspect]
     Active Substance: EPACADOSTAT
     Indication: NON-SMALL CELL LUNG CANCER
     Dosage: 100 MG, 2X/DAY
     Route: 048
     Dates: start: 20171002, end: 20171228
  6. PEMBROLIZUMAB. [Suspect]
     Active Substance: PEMBROLIZUMAB
     Indication: NON-SMALL CELL LUNG CANCER
     Dosage: 200 MG, 2X/MONTH
     Route: 042
     Dates: start: 20171002, end: 20171228
  7. PACLITAXEL. [Suspect]
     Active Substance: PACLITAXEL
     Indication: NON-SMALL CELL LUNG CANCER
     Dosage: 135 MG/M2, EVERY 3 WEEKS
     Route: 042
     Dates: start: 20171002

REACTIONS (1)
  - Pure white cell aplasia [Recovered/Resolved]

NARRATIVE: CASE EVENT DATE: 20171228
